FAERS Safety Report 17163241 (Version 1)
Quarter: 2019Q4

REPORT INFORMATION
  Report Type: Spontaneous
  Country: NL (occurrence: NL)
  Receive Date: 20191217
  Receipt Date: 20191217
  Transmission Date: 20200122
  Serious: Yes (Hospitalization)
  Sender: FDA-Public Use
  Company Number: NL-ACCORD-166115

PATIENT
  Age: 35 Year
  Sex: Female

DRUGS (4)
  1. CARBOPLATIN. [Suspect]
     Active Substance: CARBOPLATIN
     Indication: INVASIVE DUCTAL BREAST CARCINOMA
     Dosage: TWO CYCLES
  2. CYCLOPHOSPHAMIDE/CYCLOPHOSPHAMIDE MONOHYDRATE [Suspect]
     Active Substance: CYCLOPHOSPHAMIDE
     Indication: INVASIVE DUCTAL BREAST CARCINOMA
  3. DOXORUBICIN [Concomitant]
     Active Substance: DOXORUBICIN
     Indication: INVASIVE DUCTAL BREAST CARCINOMA
     Dosage: FOUR CYCLES
  4. THIOTEPA. [Suspect]
     Active Substance: THIOTEPA
     Indication: INVASIVE DUCTAL BREAST CARCINOMA
     Dosage: TWO CYCLES OF INTERMEDIATE HIGH-DOSE

REACTIONS (2)
  - Off label use [Unknown]
  - Premature menopause [Unknown]
